FAERS Safety Report 10718396 (Version 2)
Quarter: 2015Q1

REPORT INFORMATION
  Report Type: Report from Study
  Country: JP (occurrence: JP)
  Receive Date: 20150119
  Receipt Date: 20150127
  Transmission Date: 20150721
  Serious: Yes (Hospitalization)
  Sender: FDA-Public Use
  Company Number: JP-KOWA-2015S1000023

PATIENT
  Age: 60 Year
  Sex: Male
  Weight: 69 kg

DRUGS (5)
  1. RABEPRAZOLE [Concomitant]
     Active Substance: RABEPRAZOLE
     Indication: GASTRITIS PROPHYLAXIS
     Route: 048
     Dates: start: 20140716
  2. K-877 [Suspect]
     Active Substance: INVESTIGATIONAL PRODUCT
     Indication: DYSLIPIDAEMIA
     Route: 048
     Dates: start: 20140812
  3. LIVALO [Suspect]
     Active Substance: PITAVASTATIN CALCIUM
     Indication: DYSLIPIDAEMIA
     Route: 048
     Dates: start: 20131022
  4. BAYASPIRIN [Concomitant]
     Active Substance: ASPIRIN
     Indication: ANGINA PECTORIS
     Route: 048
     Dates: start: 20150111
  5. BAYASPIRIN [Concomitant]
     Active Substance: ASPIRIN
     Indication: ANGINA PECTORIS
     Route: 048
     Dates: start: 20131022, end: 20150102

REACTIONS (3)
  - Hepatic cyst [None]
  - Bladder diverticulum [None]
  - Cryptorchism [Recovered/Resolved]

NARRATIVE: CASE EVENT DATE: 20141127
